FAERS Safety Report 18695041 (Version 1)
Quarter: 2021Q1

REPORT INFORMATION
  Report Type: Spontaneous
  Country: CN (occurrence: CN)
  Receive Date: 20210104
  Receipt Date: 20210104
  Transmission Date: 20210419
  Serious: Yes (Other)
  Sender: FDA-Public Use
  Company Number: CN-PFIZER INC-2020518782

PATIENT
  Age: 70 Year
  Sex: Male
  Weight: 55 kg

DRUGS (1)
  1. METHYLPREDNISOLONE SODIUM SUCCINATE. [Suspect]
     Active Substance: METHYLPREDNISOLONE SODIUM SUCCINATE
     Indication: POLYNEUROPATHY IN MALIGNANT DISEASE
     Dosage: 40 MG, 1X/DAY
     Route: 041
     Dates: start: 20200713, end: 20200723

REACTIONS (2)
  - Off label use [Unknown]
  - Hiccups [Recovering/Resolving]

NARRATIVE: CASE EVENT DATE: 20200713
